FAERS Safety Report 5599255-X (Version None)
Quarter: 2008Q1

REPORT INFORMATION
  Report Type: 
  Country: None (occurrence: None)
  Receive Date: 20080122
  Receipt Date: 20080111
  Transmission Date: 20080703
  Serious: Yes (Death)
  Sender: FDA-Public Use
  Company Number: US-BAXTER-2008BH000497

PATIENT
  Age: 27 Year
  Sex: Male

DRUGS (2)
  1. FORANE [Suspect]
     Indication: DRUG USE FOR UNKNOWN INDICATION
     Dosage: DOSE UNIT:UNKNOWN
     Route: 048
     Dates: end: 20060101
  2. FORANE [Suspect]
     Dosage: DOSE UNIT:UNKNOWN
     Route: 055
     Dates: end: 20060101

REACTIONS (1)
  - INTENTIONAL OVERDOSE [None]
